FAERS Safety Report 5026616-X (Version None)
Quarter: 2006Q2

REPORT INFORMATION
  Report Type: 
  Country: None (occurrence: None)
  Receive Date: 20060615
  Receipt Date: 20051213
  Transmission Date: 20061013
  Serious: Yes (Hospitalization)
  Sender: FDA-Public Use
  Company Number: GB-NOVOPROD-249322

PATIENT
  Age: 56 Year
  Sex: Male
  Weight: 111 kg

DRUGS (9)
  1. LEVEMIR [Suspect]
     Indication: INSULIN-REQUIRING TYPE II DIABETES MELLITUS
     Dosage: 46 IU, QD
     Route: 058
     Dates: start: 20040730
  2. NOVORAPID PENFILL [Concomitant]
     Indication: INSULIN-REQUIRING TYPE II DIABETES MELLITUS
     Dosage: 94 IU, QD
     Route: 058
     Dates: start: 20040504
  3. METFORMIN [Concomitant]
     Dosage: 3 G, QD
     Route: 048
     Dates: start: 19990312
  4. ASPIRIN [Concomitant]
     Dosage: 75 MG, QD
     Route: 048
     Dates: start: 19980731
  5. DOXAZOSIN [Concomitant]
     Dosage: 8 MG, QD
     Route: 048
     Dates: start: 20010101
  6. BENDROFLUAZIDE [Concomitant]
     Dosage: 2.5 MG, QD
     Route: 048
     Dates: start: 20030101
  7. LANSOPRAZOLE [Concomitant]
     Dosage: 300 MG, QD
     Route: 048
     Dates: start: 20030814
  8. IRBESARTAN [Concomitant]
     Dosage: 150 MG, QD
     Route: 048
     Dates: start: 20030101
  9. FENOFIBRATE [Concomitant]
     Dosage: 200 MG, QD
     Dates: start: 20040506

REACTIONS (6)
  - CHEST INJURY [None]
  - HEART RATE INCREASED [None]
  - HYPOGLYCAEMIA [None]
  - LOSS OF CONSCIOUSNESS [None]
  - MALAISE [None]
  - ROAD TRAFFIC ACCIDENT [None]
